FAERS Safety Report 7602510-2 (Version None)
Quarter: 2011Q3

REPORT INFORMATION
  Report Type: 
  Country: None (occurrence: None)
  Receive Date: 20110707
  Receipt Date: 20110513
  Transmission Date: 20111222
  Serious: Yes (Hospitalization, Other)
  Sender: FDA-Public Use
  Company Number: US-CYPR-2011-000017

PATIENT
  Sex: Male
  Weight: 124.7392 kg

DRUGS (6)
  1. CLOPIDOGREL [Suspect]
     Indication: ANTIPLATELET THERAPY
     Dosage: (75 MG QD ORAL)
     Route: 048
     Dates: start: 20110428, end: 20110512
  2. COREG [Concomitant]
  3. LISINOPRIL [Concomitant]
  4. CYPHER STENT [Concomitant]
  5. ASPIRIN [Suspect]
     Indication: CORONARY ARTERY DISEASE
     Dosage: (325 MG QD ORAL)
     Route: 048
     Dates: start: 20100429
  6. IMDUR [Concomitant]

REACTIONS (1)
  - ILIAC ARTERY STENOSIS [None]
